FAERS Safety Report 5419783-7 (Version None)
Quarter: 2007Q3

REPORT INFORMATION
  Report Type: 
  Country: None (occurrence: None)
  Receive Date: 20070820
  Receipt Date: 20070810
  Transmission Date: 20080115
  Serious: Yes (Hospitalization)
  Sender: FDA-Public Use
  Company Number: GB-ASTRAZENECA-2007AP04860

PATIENT
  Age: 24124 Day
  Sex: Female

DRUGS (1)
  1. ARIMIDEX [Suspect]
     Indication: PROPHYLAXIS
     Route: 048
     Dates: start: 20060504

REACTIONS (2)
  - FALL [None]
  - SPINAL FRACTURE [None]
